FAERS Safety Report 10019659 (Version 1)
Quarter: 2014Q1

REPORT INFORMATION
  Report Type: Report from Study
  Country: US (occurrence: US)
  Receive Date: 20140318
  Receipt Date: 20140318
  Transmission Date: 20141002
  Serious: Yes (Other)
  Sender: FDA-Public Use
  Company Number: US-BAXTER-2014BAX012249

PATIENT
  Age: 5 Year
  Sex: Male

DRUGS (3)
  1. GAMMAGARD LIQUID [Suspect]
     Indication: KAWASAKI^S DISEASE
  2. ASPIRIN [Suspect]
     Indication: KAWASAKI^S DISEASE
  3. PERSANTINE [Suspect]
     Indication: KAWASAKI^S DISEASE

REACTIONS (1)
  - Aneurysm [Unknown]
